FAERS Safety Report 9107455 (Version 1)
Quarter: 2013Q1

REPORT INFORMATION
  Report Type: Spontaneous
  Country: JP (occurrence: JP)
  Receive Date: 20130221
  Receipt Date: 20130221
  Transmission Date: 20140127
  Serious: Yes (Hospitalization)
  Sender: FDA-Public Use
  Company Number: JP-ACCORD-016468

PATIENT
  Age: 43 Year
  Sex: Female

DRUGS (6)
  1. TACROLIMUS [Suspect]
     Indication: LUNG TRANSPLANT
     Dosage: TARGET TROUGH LEVEL, 15-20 NG/ML FOR THE FIRST 3 MONTHS FOLLOWED BY?10-15 NG/ML
  2. TRIMETHOPRIM SULFAMETHOXAZOLE [Concomitant]
     Indication: PROPHYLAXIS
     Dosage: EVERY OTHER DAY
  3. ITRACONAZOLE [Concomitant]
     Indication: PROPHYLAXIS
     Route: 048
  4. PREDNISOLONE [Suspect]
     Indication: LUNG TRANSPLANT
     Dosage: 0.4 MG/KG PER?DAY FOR THE FIRST 6 MONTHS FOLLOWED BY 0.2 MG/KG PER DAY
  5. VALGANCICLOVIR [Concomitant]
     Indication: PROPHYLAXIS
  6. MYCOPHENOLATE MOFETIL [Suspect]
     Indication: LUNG TRANSPLANT

REACTIONS (2)
  - Bronchopulmonary aspergillosis [Recovered/Resolved]
  - Off label use [Unknown]
